FAERS Safety Report 19083796 (Version 2)
Quarter: 2021Q4

REPORT INFORMATION
  Report Type: Spontaneous
  Country: US (occurrence: US)
  Receive Date: 20210401
  Receipt Date: 20211227
  Transmission Date: 20220303
  Serious: No
  Sender: FDA-Public Use
  Company Number: US-PFIZER INC-2020215565

PATIENT
  Age: 54 Year
  Sex: Female

DRUGS (9)
  1. LYRICA [Suspect]
     Active Substance: PREGABALIN
     Indication: Nerve injury
     Dosage: 300 MG A DAY
     Route: 048
  2. LYRICA [Suspect]
     Active Substance: PREGABALIN
     Indication: Herpes zoster
  3. LYRICA [Suspect]
     Active Substance: PREGABALIN
     Indication: Ocular vascular disorder
  4. LYRICA [Suspect]
     Active Substance: PREGABALIN
     Indication: Pain
  5. LYRICA [Suspect]
     Active Substance: PREGABALIN
     Indication: Epilepsy
  6. LYRICA [Suspect]
     Active Substance: PREGABALIN
     Indication: Nervous system disorder
  7. LYRICA [Suspect]
     Active Substance: PREGABALIN
     Indication: Cognitive disorder
  8. LYRICA [Suspect]
     Active Substance: PREGABALIN
     Indication: Fibromyalgia
  9. LYRICA [Suspect]
     Active Substance: PREGABALIN
     Indication: Neuropathy peripheral

REACTIONS (2)
  - Drug ineffective [Unknown]
  - Memory impairment [Unknown]
